FAERS Safety Report 23630858 (Version 1)
Quarter: 2024Q1

REPORT INFORMATION
  Report Type: Spontaneous
  Country: US (occurrence: None)
  Receive Date: 20240314
  Receipt Date: 20240314
  Transmission Date: 20240409
  Serious: No
  Sender: FDA-Public Use
  Company Number: 2024A039426

PATIENT

DRUGS (1)
  1. CRESTOR [Suspect]
     Active Substance: ROSUVASTATIN CALCIUM
     Indication: Blood cholesterol decreased
     Route: 048

REACTIONS (6)
  - Medication error [Unknown]
  - Rash [Unknown]
  - Erythema [Unknown]
  - Eye swelling [Unknown]
  - Drug hypersensitivity [Unknown]
  - Supplementation therapy [Unknown]
